FAERS Safety Report 10234115 (Version 1)
Quarter: 2014Q2

REPORT INFORMATION
  Report Type: Spontaneous
  Country: US (occurrence: US)
  Receive Date: 20140612
  Receipt Date: 20140612
  Transmission Date: 20141212
  Serious: Yes (Other)
  Sender: FDA-Public Use
  Company Number: US-VIIV HEALTHCARE LIMITED-A1076016A

PATIENT
  Age: 37 Year
  Sex: Male

DRUGS (3)
  1. TIVICAY [Suspect]
     Indication: HIV INFECTION
     Dosage: 50MG PER DAY
     Route: 048
     Dates: start: 20140525
  2. TRUVADA [Suspect]
     Indication: HIV INFECTION
     Dates: start: 20140525
  3. UNSPECIFIED MEDICATIONS [Concomitant]

REACTIONS (2)
  - Gastrointestinal haemorrhage [Recovering/Resolving]
  - Blood creatinine increased [Unknown]
